FAERS Safety Report 5397101-0 (Version None)
Quarter: 2007Q3

REPORT INFORMATION
  Report Type: 
  Country: None (occurrence: None)
  Receive Date: 20070725
  Receipt Date: 20070712
  Transmission Date: 20080115
  Serious: Yes (Other)
  Sender: FDA-Public Use
  Company Number: US-PFIZER INC-2006153705

PATIENT
  Sex: Female

DRUGS (7)
  1. CELEBREX [Suspect]
     Route: 048
  2. TYLENOL (CAPLET) [Concomitant]
  3. MORPHINE [Concomitant]
  4. DEMEROL [Concomitant]
  5. CODEINE SUL TAB [Concomitant]
  6. ASPIRIN [Concomitant]
  7. ADVIL LIQUI-GELS [Concomitant]

REACTIONS (9)
  - ANGINA UNSTABLE [None]
  - CARDIAC ARREST [None]
  - CARDIOVASCULAR DISORDER [None]
  - CEREBROVASCULAR DISORDER [None]
  - CHEST PAIN [None]
  - DIZZINESS [None]
  - FATIGUE [None]
  - GASTROINTESTINAL HAEMORRHAGE [None]
  - HYPERTENSION [None]
